FAERS Safety Report 18986964 (Version 1)
Quarter: 2021Q1

REPORT INFORMATION
  Report Type: Spontaneous
  Country: US (occurrence: US)
  Receive Date: 20210309
  Receipt Date: 20210309
  Transmission Date: 20210420
  Serious: Yes (Hospitalization)
  Sender: FDA-Public Use
  Company Number: None

PATIENT
  Age: 75 Year
  Sex: Female

DRUGS (17)
  1. VITAMIN B12 [Concomitant]
     Active Substance: CYANOCOBALAMIN
  2. GABAPENTIN. [Concomitant]
     Active Substance: GABAPENTIN
  3. SOTALOL. [Concomitant]
     Active Substance: SOTALOL
  4. SILDENAFIL. [Suspect]
     Active Substance: SILDENAFIL
     Indication: PULMONARY HYPERTENSION
     Route: 048
     Dates: start: 20200106
  5. LISINOPRIL. [Concomitant]
     Active Substance: LISINOPRIL
  6. MONTELUKAST [Concomitant]
     Active Substance: MONTELUKAST SODIUM
  7. ELIQUIS [Suspect]
     Active Substance: APIXABAN
  8. OMEPRAZOLE. [Concomitant]
     Active Substance: OMEPRAZOLE
  9. CELEBREX [Suspect]
     Active Substance: CELECOXIB
  10. OMPERAZOLE [Suspect]
     Active Substance: OMEPRAZOLE
  11. ELIQUIS [Concomitant]
     Active Substance: APIXABAN
  12. ROSUVASTATIN. [Concomitant]
     Active Substance: ROSUVASTATIN
  13. CALCIUM [Concomitant]
     Active Substance: CALCIUM
  14. VENTOLIN [Concomitant]
     Active Substance: ALBUTEROL SULFATE
  15. CELEBREX [Concomitant]
     Active Substance: CELECOXIB
  16. FUROSEMIDE. [Concomitant]
     Active Substance: FUROSEMIDE
  17. SYMBICORT [Concomitant]
     Active Substance: BUDESONIDE\FORMOTEROL FUMARATE DIHYDRATE

REACTIONS (4)
  - Haemoglobin decreased [None]
  - Haematochezia [None]
  - Asthenia [None]
  - Transfusion [None]

NARRATIVE: CASE EVENT DATE: 20210226
